FAERS Safety Report 7339749-X (Version None)
Quarter: 2011Q1

REPORT INFORMATION
  Report Type: 
  Country: None (occurrence: None)
  Receive Date: 20110309
  Receipt Date: 20110121
  Transmission Date: 20110831
  Serious: Yes (Other)
  Sender: FDA-Public Use
  Company Number: US-BAYER-2011-020915

PATIENT
  Sex: Female
  Weight: 90.703 kg

DRUGS (2)
  1. IBUPROFEN [Concomitant]
  2. YASMIN [Suspect]
     Indication: CONTRACEPTION
     Dosage: UNK
     Dates: start: 19990101, end: 20050101

REACTIONS (5)
  - FATIGUE [None]
  - NAUSEA [None]
  - DYSPEPSIA [None]
  - GALLBLADDER DISORDER [None]
  - VOMITING [None]
